FAERS Safety Report 6938828-6 (Version None)
Quarter: 2010Q3

REPORT INFORMATION
  Report Type: 
  Country: None (occurrence: None)
  Receive Date: 20100824
  Receipt Date: 20100813
  Transmission Date: 20110219
  Serious: Yes (Other)
  Sender: FDA-Public Use
  Company Number: US-ROCHE-721930

PATIENT

DRUGS (2)
  1. AVASTIN [Suspect]
     Route: 031
  2. KENALOG [Suspect]
     Dosage: FOR TOTAL SYRINGE VOLUME OF 0.5 ML
     Route: 031

REACTIONS (2)
  - CONVULSION [None]
  - EXPIRED DRUG ADMINISTERED [None]
